FAERS Safety Report 17631845 (Version 1)
Quarter: 2020Q2

REPORT INFORMATION
  Report Type: Spontaneous
  Country: US (occurrence: US)
  Receive Date: 20200403
  Receipt Date: 20200403
  Transmission Date: 20200713
  Serious: No
  Sender: FDA-Public Use
  Company Number: None

PATIENT
  Age: 79 Year
  Sex: Male
  Weight: 95.25 kg

DRUGS (2)
  1. MIRTAZAPINE. [Suspect]
     Active Substance: MIRTAZAPINE
     Indication: DEPRESSION
     Dosage: ?          QUANTITY:12 MUST BE SPLIT;?
     Route: 048
  2. MIRTAZAPINE. [Suspect]
     Active Substance: MIRTAZAPINE
     Indication: SOMNOLENCE
     Dosage: ?          QUANTITY:12 MUST BE SPLIT;?
     Route: 048

REACTIONS (1)
  - Therapeutic product effect decreased [None]

NARRATIVE: CASE EVENT DATE: 20200320
